FAERS Safety Report 16128063 (Version 2)
Quarter: 2019Q3

REPORT INFORMATION
  Report Type: Report from Study
  Country: US (occurrence: US)
  Receive Date: 20190328
  Receipt Date: 20190709
  Transmission Date: 20191004
  Serious: No
  Sender: FDA-Public Use
  Company Number: US-SA-2019SA076428

PATIENT
  Age: 18 Year
  Sex: Male

DRUGS (1)
  1. IMIGLUCERASE [Suspect]
     Active Substance: IMIGLUCERASE
     Indication: GAUCHER^S DISEASE
     Dosage: 4400 UNK, QOW
     Route: 041
     Dates: start: 20050929

REACTIONS (5)
  - Constipation [Unknown]
  - Stress [Not Recovered/Not Resolved]
  - Product storage error [Unknown]
  - Gastrointestinal disorder [Unknown]
  - Anxiety [Unknown]

NARRATIVE: CASE EVENT DATE: 2019
